FAERS Safety Report 9968982 (Version 1)
Quarter: 2014Q1

REPORT INFORMATION
  Report Type: Report from Study
  Country: US (occurrence: US)
  Receive Date: 20140306
  Receipt Date: 20140306
  Transmission Date: 20141002
  Serious: Yes (Hospitalization, Other)
  Sender: FDA-Public Use
  Company Number: US-ABBVIE-13P-163-1140035-00

PATIENT
  Age: 41 Year
  Sex: Male

DRUGS (7)
  1. HUMIRA [Suspect]
     Indication: RHEUMATOID ARTHRITIS
  2. TRAMADOL [Concomitant]
     Indication: PAIN
     Dosage: 2 TABS, TWICE DAILY
  3. METHOTREXATE [Concomitant]
     Indication: RHEUMATOID ARTHRITIS
     Dosage: 8 TABS WEEKLY
  4. PREDNISONE [Concomitant]
     Indication: RHEUMATOID ARTHRITIS
  5. TYLENOL [Concomitant]
     Indication: PAIN
  6. LYRICA [Concomitant]
     Indication: NERVE INJURY
  7. LYRICA [Concomitant]
     Indication: LIMB CRUSHING INJURY

REACTIONS (2)
  - Hypertension [Recovered/Resolved]
  - Pneumonia [Recovered/Resolved]
